FAERS Safety Report 4512384-4 (Version None)
Quarter: 2004Q4

REPORT INFORMATION
  Report Type: 
  Country: None (occurrence: None)
  Receive Date: 20041123
  Receipt Date: 20041115
  Transmission Date: 20050328
  Serious: Yes (Life-Threatening)
  Sender: FDA-Public Use
  Company Number: 2004AC00778

PATIENT
  Age: 69 Year
  Sex: Male

DRUGS (2)
  1. LIDOCAINE [Suspect]
     Indication: LOCAL ANAESTHESIA
     Dosage: 7.5 ML TP
     Route: 061
  2. ATROPINE [Suspect]
     Indication: LOCAL ANAESTHESIA
     Dosage: 0.2 MG IV
     Route: 042

REACTIONS (4)
  - ANAESTHETIC COMPLICATION [None]
  - HYPOXIA [None]
  - LARYNGEAL OEDEMA [None]
  - OBSTRUCTIVE AIRWAYS DISORDER [None]
